FAERS Safety Report 12484671 (Version 1)
Quarter: 2016Q2

REPORT INFORMATION
  Report Type: Spontaneous
  Country: US (occurrence: None)
  Receive Date: 20160620
  Receipt Date: 20160620
  Transmission Date: 20160815
  Serious: Yes (Life-Threatening)
  Sender: FDA-Public Use
  Company Number: None

PATIENT
  Age: 55 Year
  Sex: Female
  Weight: 97.52 kg

DRUGS (8)
  1. MAGNESIUM [Concomitant]
     Active Substance: MAGNESIUM
  2. BENAZEPRIL HCL, 20 MG SOLCO [Suspect]
     Active Substance: BENAZEPRIL HYDROCHLORIDE
     Indication: HYPERTENSION
     Route: 048
  3. VITAMIN C [Concomitant]
     Active Substance: ASCORBIC ACID
  4. ONE-A-DAY VITAMIN [Concomitant]
  5. JANUVIA [Concomitant]
     Active Substance: SITAGLIPTIN PHOSPHATE
  6. BENAZEPRIL [Concomitant]
     Active Substance: BENAZEPRIL HYDROCHLORIDE
  7. CRANBERRY PILL [Concomitant]
  8. LASIX [Concomitant]
     Active Substance: FUROSEMIDE

REACTIONS (8)
  - Fatigue [None]
  - Chills [None]
  - Blood pressure increased [None]
  - Product substitution issue [None]
  - Dyspnoea [None]
  - Hyperhidrosis [None]
  - Vision blurred [None]
  - Feeling abnormal [None]

NARRATIVE: CASE EVENT DATE: 20160512
